FAERS Safety Report 19944214 (Version 1)
Quarter: 2021Q4

REPORT INFORMATION
  Report Type: Spontaneous
  Country: US (occurrence: US)
  Receive Date: 20211011
  Receipt Date: 20211011
  Transmission Date: 20220303
  Serious: No
  Sender: FDA-Public Use
  Company Number: US-JUBILANT CADISTA PHARMACEUTICALS-2021JUB00093

PATIENT
  Age: 79 Year
  Sex: Female
  Weight: 76.19 kg

DRUGS (8)
  1. PREDNISONE [Suspect]
     Active Substance: PREDNISONE
     Indication: Urticaria
     Dosage: 40 MG, 1X/DAY
     Route: 048
     Dates: start: 20210201, end: 20210205
  2. ALLOPURINOL [Concomitant]
     Active Substance: ALLOPURINOL
  3. LOSARTAN [Concomitant]
     Active Substance: LOSARTAN
  4. SIMVASTATIN [Concomitant]
     Active Substance: SIMVASTATIN
  5. POTASSIUM [Concomitant]
     Active Substance: POTASSIUM
  6. MAGNESIUM [Concomitant]
     Active Substance: MAGNESIUM
  7. CALCIUM [Concomitant]
     Active Substance: CALCIUM
  8. ZINC [Concomitant]
     Active Substance: ZINC

REACTIONS (5)
  - Scar [Not Recovered/Not Resolved]
  - Papule [Not Recovered/Not Resolved]
  - Skin discolouration [Not Recovered/Not Resolved]
  - Drug ineffective [Recovered/Resolved]
  - Urticaria [Recovered/Resolved]

NARRATIVE: CASE EVENT DATE: 20210101
